FAERS Safety Report 6006435-8 (Version None)
Quarter: 2008Q4

REPORT INFORMATION
  Report Type: 
  Country: None (occurrence: None)
  Receive Date: 20081217
  Receipt Date: 20071230
  Transmission Date: 20090506
  Serious: No
  Sender: FDA-Public Use
  Company Number: US-AMGEN-KDL258637

PATIENT
  Sex: Female

DRUGS (2)
  1. ENBREL [Suspect]
     Indication: RHEUMATOID ARTHRITIS
     Route: 058
     Dates: start: 20050120
  2. METHOTREXATE [Concomitant]
     Route: 048
     Dates: start: 20000101

REACTIONS (5)
  - ASTHENIA [None]
  - CHOLECYSTITIS [None]
  - CHOLELITHIASIS [None]
  - KIDNEY INFECTION [None]
  - PRESYNCOPE [None]
